FAERS Safety Report 21932446 (Version 2)
Quarter: 2023Q1

REPORT INFORMATION
  Report Type: Spontaneous
  Country: US (occurrence: None)
  Receive Date: 20230131
  Receipt Date: 20230303
  Transmission Date: 20230418
  Serious: No
  Sender: FDA-Public Use
  Company Number: 2023A016901

PATIENT
  Age: 17833 Day
  Sex: Male

DRUGS (1)
  1. TEZSPIRE [Suspect]
     Active Substance: TEZEPELUMAB-EKKO
     Indication: Asthma
     Route: 058

REACTIONS (5)
  - Administration site warmth [Recovering/Resolving]
  - Feeling hot [Recovering/Resolving]
  - Muscle spasms [Unknown]
  - Myalgia [Unknown]
  - Dizziness [Unknown]

NARRATIVE: CASE EVENT DATE: 20230119
